FAERS Safety Report 15889231 (Version 1)
Quarter: 2019Q1

REPORT INFORMATION
  Report Type: Spontaneous
  Country: US (occurrence: US)
  Receive Date: 20190130
  Receipt Date: 20190130
  Transmission Date: 20190417
  Serious: Yes (Death)
  Sender: FDA-Public Use
  Company Number: US-IMPAX LABORATORIES, LLC-2019-IPXL-00313

PATIENT

DRUGS (1)
  1. DIPYRIDAMOLE. [Suspect]
     Active Substance: DIPYRIDAMOLE
     Indication: CARDIAC PHARMACOLOGIC STRESS TEST
     Dosage: 142 MICROGRAM/KILOGRAM, EVERY MIN (FOR 4 MIN)
     Route: 065

REACTIONS (2)
  - Off label use [Unknown]
  - Adverse event [Fatal]
